FAERS Safety Report 6850442-X (Version None)
Quarter: 2010Q3

REPORT INFORMATION
  Report Type: 
  Country: None (occurrence: None)
  Receive Date: 20100716
  Receipt Date: 20071107
  Transmission Date: 20110219
  Serious: No
  Sender: FDA-Public Use
  Company Number: US-PFIZER INC-2007087415

PATIENT
  Sex: Female
  Weight: 80 kg

DRUGS (5)
  1. CHANTIX [Suspect]
     Indication: SMOKING CESSATION THERAPY
     Dates: start: 20071002
  2. WELLBUTRIN [Concomitant]
     Indication: DEPRESSION
  3. BUSPAR [Concomitant]
     Indication: DEPRESSION
  4. NEXIUM [Concomitant]
  5. LISINOPRIL [Concomitant]
     Indication: HYPERTENSION

REACTIONS (3)
  - ABNORMAL DREAMS [None]
  - DYSPEPSIA [None]
  - HEADACHE [None]
